FAERS Safety Report 20379654 (Version 2)
Quarter: 2022Q1

REPORT INFORMATION
  Report Type: Report from Study
  Country: RU (occurrence: RU)
  Receive Date: 20220126
  Receipt Date: 20220221
  Transmission Date: 20220423
  Serious: Yes (Death, Congenital Anomaly, Other)
  Sender: FDA-Public Use
  Company Number: RU-TEVA-2022-RU-2001592

PATIENT
  Age: 9 Week

DRUGS (4)
  1. FREMANEZUMAB [Suspect]
     Active Substance: FREMANEZUMAB
     Indication: Migraine
     Dosage: OL: ACTIVE TREATMENT PHASE
     Route: 064
     Dates: start: 20210915, end: 20210915
  2. FREMANEZUMAB [Suspect]
     Active Substance: FREMANEZUMAB
     Dosage: DB: FREMANEZUMAB 225MG OR PLACEBO
     Route: 064
     Dates: start: 20210617, end: 20210915
  3. ZOLMITRIPTAN [Concomitant]
     Active Substance: ZOLMITRIPTAN
     Indication: Migraine
     Dosage: TAKEN DURING THE PREGNANCY, ONGOING
     Route: 048
     Dates: start: 20210523
  4. GAM-COVID-VAC: SPUTNIK V [Concomitant]
     Indication: COVID-19 prophylaxis
     Dosage: BEFORE CONCEPTION
     Route: 030
     Dates: start: 20210910, end: 20210910

REACTIONS (2)
  - Foetal chromosome abnormality [Fatal]
  - Foetal exposure during pregnancy [Unknown]

NARRATIVE: CASE EVENT DATE: 20210916
